FAERS Safety Report 9403223 (Version 1)
Quarter: 2013Q3

REPORT INFORMATION
  Report Type: Spontaneous
  Country: US (occurrence: None)
  Receive Date: 20130712
  Receipt Date: 20130712
  Transmission Date: 20140515
  Serious: No
  Sender: FDA-Public Use
  Company Number: 2013-00114

PATIENT
  Age: 72 Year
  Sex: Male
  Weight: 89.81 kg

DRUGS (1)
  1. ZICAM COLD REMEDY ORAL MIST [Suspect]
     Indication: NASOPHARYNGITIS
     Route: 048

REACTIONS (1)
  - Ageusia [None]
